FAERS Safety Report 9370007 (Version 1)
Quarter: 2013Q2

REPORT INFORMATION
  Report Type: Spontaneous
  Country: DK (occurrence: BE)
  Receive Date: 20130626
  Receipt Date: 20130626
  Transmission Date: 20140414
  Serious: Yes (Disabling, Congenital Anomaly)
  Sender: FDA-Public Use
  Company Number: BE-FRI-1000046207

PATIENT
  Sex: 0
  Weight: 6 kg

DRUGS (1)
  1. ESCITALOPRAM [Suspect]
     Route: 064

REACTIONS (3)
  - Microphthalmos [Unknown]
  - Visual acuity reduced [Unknown]
  - Foetal exposure during pregnancy [Unknown]
